FAERS Safety Report 17757596 (Version 1)
Quarter: 2020Q2

REPORT INFORMATION
  Report Type: Spontaneous
  Country: US (occurrence: US)
  Receive Date: 20200507
  Receipt Date: 20200507
  Transmission Date: 20200714
  Serious: No
  Sender: FDA-Public Use
  Company Number: US-009507513-2005USA001744

PATIENT
  Sex: Female
  Weight: 64.4 kg

DRUGS (2)
  1. KEYTRUDA [Suspect]
     Active Substance: PEMBROLIZUMAB
     Indication: ENDOMETRIAL NEOPLASM
     Dosage: UNK
  2. LENVATINIB MESYLATE [Suspect]
     Active Substance: LENVATINIB MESYLATE
     Indication: ENDOMETRIAL NEOPLASM
     Dosage: 10 MILLIGRAM, DAILY (QD), 1 DAILY
     Route: 048
     Dates: start: 20191113

REACTIONS (5)
  - Stomatitis [Unknown]
  - Diarrhoea [Unknown]
  - Decreased appetite [Unknown]
  - Tongue ulceration [Unknown]
  - Upper-airway cough syndrome [Unknown]

NARRATIVE: CASE EVENT DATE: 2020
